FAERS Safety Report 4767605-X (Version None)
Quarter: 2005Q3

REPORT INFORMATION
  Report Type: 
  Country: None (occurrence: None)
  Receive Date: 20050913
  Receipt Date: 20050510
  Transmission Date: 20060218
  Serious: Yes (Hospitalization, Other)
  Sender: FDA-Public Use
  Company Number: US-MERCK-0505USA01530

PATIENT
  Age: 79 Year
  Sex: Female
  Weight: 90 kg

DRUGS (4)
  1. VIOXX [Suspect]
     Route: 048
     Dates: start: 19990101, end: 20040101
  2. NORVASC [Concomitant]
     Indication: HYPERTENSION
     Route: 048
  3. DIOVAN [Concomitant]
     Indication: HYPERTENSION
     Route: 048
  4. LIPITOR [Concomitant]
     Indication: BLOOD CHOLESTEROL INCREASED
     Route: 048

REACTIONS (18)
  - ANAEMIA [None]
  - AZOTAEMIA [None]
  - CEREBROVASCULAR ACCIDENT [None]
  - DEEP VEIN THROMBOSIS [None]
  - DEHYDRATION [None]
  - DRUG DEPENDENCE [None]
  - FAECALOMA [None]
  - HEPATIC CYST [None]
  - HYPOTENSION [None]
  - ILEUS [None]
  - IMPAIRED GASTRIC EMPTYING [None]
  - JOINT SWELLING [None]
  - NAUSEA [None]
  - NEPHROLITHIASIS [None]
  - RENAL CYST [None]
  - THROMBOSIS [None]
  - TRAUMATIC ULCER [None]
  - VOMITING [None]
